FAERS Safety Report 14688609 (Version 1)
Quarter: 2018Q1

REPORT INFORMATION
  Report Type: Spontaneous
  Country: GB (occurrence: GB)
  Receive Date: 20180328
  Receipt Date: 20180328
  Transmission Date: 20180509
  Serious: Yes (Other)
  Sender: FDA-Public Use
  Company Number: GB-LPDUSPRD-20180409

PATIENT
  Age: 48 Year
  Sex: Female
  Weight: 70.76 kg

DRUGS (2)
  1. OMEPRAZOLE. [Concomitant]
     Active Substance: OMEPRAZOLE
     Dosage: UNKNOWN
     Route: 065
  2. FERINJECT [Suspect]
     Active Substance: FERRIC CARBOXYMALTOSE
     Dosage: UNKNOWN
     Route: 048
     Dates: start: 20180220, end: 20180220

REACTIONS (7)
  - Cough [Unknown]
  - Bone pain [Unknown]
  - Influenza [Not Recovered/Not Resolved]
  - Headache [Unknown]
  - Myalgia [Unknown]
  - Incorrect route of drug administration [Unknown]
  - Pyrexia [Unknown]

NARRATIVE: CASE EVENT DATE: 20180223
